FAERS Safety Report 9157960 (Version 2)
Quarter: 2013Q1

REPORT INFORMATION
  Report Type: Spontaneous
  Country: CA (occurrence: None)
  Receive Date: 20130211
  Receipt Date: 20130312
  Transmission Date: 20140127
  Serious: Yes (Other)
  Sender: FDA-Public Use
  Company Number: 2013AP001699

PATIENT
  Age: 41 Year
  Sex: Male

DRUGS (4)
  1. CLOZAPINE [Suspect]
     Indication: SCHIZOPHRENIA
     Dosage: 50 MG; HS PO, 1 DAY
     Route: 048
     Dates: start: 20130129, end: 20130129
  2. OLANZAPINE (OLANZAPINE) [Suspect]
     Indication: SCHIZOPHRENIA
     Dosage: 7.5 MG; HS PO
     Route: 048
     Dates: start: 20130123
  3. VITAMINS [Concomitant]
  4. THIAMINE (THIAMINE) [Concomitant]

REACTIONS (3)
  - Neutrophil count decreased [None]
  - Schizophrenia, paranoid type [None]
  - White blood cell count decreased [None]
